FAERS Safety Report 5340445-9 (Version None)
Quarter: 2007Q2

REPORT INFORMATION
  Report Type: 
  Country: None (occurrence: None)
  Receive Date: 20070531
  Receipt Date: 20070529
  Transmission Date: 20071010
  Serious: Yes (Death)
  Sender: FDA-Public Use
  Company Number: SE-BRISTOL-MYERS SQUIBB COMPANY-13797048

PATIENT
  Age: 76 Year
  Sex: Male

DRUGS (1)
  1. BARACLUDE [Suspect]

REACTIONS (2)
  - MULTI-ORGAN FAILURE [None]
  - SEPSIS [None]
